FAERS Safety Report 4330250-4 (Version None)
Quarter: 2004Q1

REPORT INFORMATION
  Report Type: 
  Country: None (occurrence: None)
  Receive Date: 20040329
  Receipt Date: 20040312
  Transmission Date: 20041129
  Serious: Yes (Hospitalization)
  Sender: FDA-Public Use
  Company Number: DSA_24006_2004

PATIENT
  Age: 80 Year
  Sex: Female

DRUGS (13)
  1. LORAZEPAM [Suspect]
     Dosage: 1.5 MG Q DAY PO
     Route: 048
     Dates: start: 20030515, end: 20030603
  2. LORAZEPAM [Suspect]
     Dosage: 3 MG Q DAY PO
     Route: 048
     Dates: start: 20030604, end: 20030606
  3. LORAZEPAM [Suspect]
     Dosage: 0.5 MG Q DAY PO
     Route: 048
     Dates: start: 20030501, end: 20030514
  4. LORAZEPAM [Suspect]
     Dosage: 1 MG Q DAY PO
     Route: 048
     Dates: start: 20030601
  5. CIPRALEX          /DEN/ [Suspect]
     Indication: DEPRESSION
     Dates: start: 20030501, end: 20030605
  6. CIPRALEX              /DEN/ [Suspect]
     Indication: DEPRESSION
     Dates: start: 20030616
  7. CIPRALEX          /DEN/ [Suspect]
     Indication: DEPRESSION
     Dates: start: 20030321, end: 20030430
  8. LAMICTAL [Suspect]
     Dosage: 100 MG Q DAY
     Dates: start: 20030515, end: 20030603
  9. LAMICTAL [Suspect]
     Dates: start: 20030505, end: 20030514
  10. ZYPREXA [Suspect]
     Indication: DEPRESSION
     Dosage: 5 MG Q DAY
     Dates: start: 20030519, end: 20030606
  11. ZYPREXA [Suspect]
     Indication: DEPRESSION
     Dosage: 2.5 MG Q DAY
     Dates: start: 20030514, end: 20030518
  12. REMERON [Suspect]
  13. VALPROIC ACID [Concomitant]

REACTIONS (15)
  - ABASIA [None]
  - ANTIDEPRESSANT DRUG LEVEL INCREASED [None]
  - ASTHENIA [None]
  - DECREASED ACTIVITY [None]
  - DRUG INTERACTION [None]
  - DRUG LEVEL INCREASED [None]
  - EXANTHEM [None]
  - FALL [None]
  - HAEMOTHORAX [None]
  - INFECTION [None]
  - LEUKOPENIA [None]
  - MARKEDLY REDUCED DIETARY INTAKE [None]
  - NORMOCHROMIC NORMOCYTIC ANAEMIA [None]
  - PRURITUS [None]
  - RIB FRACTURE [None]
